FAERS Safety Report 4992994-0 (Version None)
Quarter: 2006Q2

REPORT INFORMATION
  Report Type: 
  Country: None (occurrence: None)
  Receive Date: 20060504
  Receipt Date: 20060405
  Transmission Date: 20061013
  Serious: Yes (Hospitalization, Disabling)
  Sender: FDA-Public Use
  Company Number: US-MERCK-0604USA00625

PATIENT
  Age: 56 Year
  Sex: Male
  Weight: 123 kg

DRUGS (8)
  1. VIOXX [Suspect]
     Indication: ARTHRITIS
     Route: 048
     Dates: start: 19991001, end: 20040901
  2. HYDROCHLOROTHIAZIDE [Concomitant]
     Route: 065
  3. TYLENOL (CAPLET) [Concomitant]
     Route: 065
  4. LANOXIN [Concomitant]
     Route: 065
  5. PLAVIX [Concomitant]
     Route: 065
  6. CAPOTEN [Concomitant]
     Route: 065
  7. COREG [Concomitant]
     Route: 065
  8. ZOCOR [Concomitant]
     Route: 065

REACTIONS (3)
  - JOINT INJURY [None]
  - LIMB INJURY [None]
  - MYOCARDIAL INFARCTION [None]
